FAERS Safety Report 7705175-4 (Version None)
Quarter: 2011Q3

REPORT INFORMATION
  Report Type: 
  Country: None (occurrence: None)
  Receive Date: 20110824
  Receipt Date: 20110818
  Transmission Date: 20111222
  Serious: Yes (Death)
  Sender: FDA-Public Use
  Company Number: US-AMGEN-USASP2011042263

PATIENT
  Age: 75 Year
  Sex: Female

DRUGS (8)
  1. ARANESP [Suspect]
     Indication: ANAEMIA
     Dosage: 60 A?G, UNK
  2. ARICEPT [Concomitant]
     Dosage: UNK
  3. CARBIDOPA [Concomitant]
     Dosage: UNK
  4. POTASSIUM [Concomitant]
  5. ALPRAZOLAM [Concomitant]
  6. NAMENDA [Concomitant]
  7. LEVODOPA [Concomitant]
     Dosage: UNK
  8. SEROQUEL [Concomitant]

REACTIONS (1)
  - DEMENTIA WITH LEWY BODIES [None]
